FAERS Safety Report 16221246 (Version 1)
Quarter: 2019Q2

REPORT INFORMATION
  Report Type: Spontaneous
  Country: NL (occurrence: NL)
  Receive Date: 20190422
  Receipt Date: 20190422
  Transmission Date: 20190711
  Serious: Yes (Hospitalization)
  Sender: FDA-Public Use
  Company Number: NL-TEVA-2019-NL-1040121

PATIENT
  Age: 70 Year
  Sex: Male

DRUGS (10)
  1. PANTOPRAZOL MAAGSAPRESISTENTE TABLET, 40 MG (MILLIGRAM) [Suspect]
     Active Substance: PANTOPRAZOLE SODIUM
     Indication: DUODENAL ULCER
     Dosage: 40 MILLIGRAM DAILY; 1D1
     Dates: start: 20071201, end: 20190326
  2. ISOSORBIDEDINITRAAT TABLET SUBLINGUAAL 5MG [Concomitant]
     Dosage: IF NECESSARY 1 X PER DAY 1 PIECE IF NECESSARY
  3. ALFACALCIDOL CAPSULE 0,25UG [Concomitant]
     Dosage: 1 X PER DAY 1 PIECE
  4. TIMOLOL OOGDRUPPELS 5MG/ML FL 5ML [Concomitant]
     Dosage: 2 X PER DAY 1 DROP
  5. ROSUVASTATINE TABLET FO 10MG (ALS CA-ZOUT) [Concomitant]
     Dosage: 10 MILLIGRAM DAILY; 1 X PER DAY 1 PIECE
  6. ALLOPURINOL TABLET 100MG [Concomitant]
     Active Substance: ALLOPURINOL
     Dosage: 200 MILLIGRAM DAILY; 1 X PER DAY 2 PIECE
  7. METOPROLOL TABLET MGA 100MG (SUCCINAAT) [Concomitant]
     Active Substance: METOPROLOL
     Dosage: 50 MILLIGRAM DAILY; 1 X PER DAY 0.5 EACH
  8. ACETYLSALICYLZUUR TABLET  80MG [Concomitant]
     Dosage: 80 MILLIGRAM DAILY; 1 X PER DAY 1 PIECE
  9. COLCHICINE TABLET 0,5MG [Concomitant]
     Dosage: IF NECESSARY 1 X PER DAY 1 PIECE EM IF NECESSARY
  10. FUROSEMIDE TABLET 40MG [Concomitant]
     Active Substance: FUROSEMIDE
     Dosage: 40 MILLIGRAM DAILY; 1 X PER DAY 1 PIECE

REACTIONS (2)
  - Hypocalcaemia [Recovering/Resolving]
  - Hypomagnesaemia [Recovering/Resolving]

NARRATIVE: CASE EVENT DATE: 20180719
